FAERS Safety Report 15083454 (Version 1)
Quarter: 2018Q2

REPORT INFORMATION
  Report Type: Spontaneous
  Country: CZ (occurrence: CZ)
  Receive Date: 20180628
  Receipt Date: 20180628
  Transmission Date: 20180711
  Serious: Yes (Life-Threatening, Hospitalization)
  Sender: FDA-Public Use
  Company Number: CZ-B. BRAUN MEDICAL INC.-2050131

PATIENT
  Age: 52 Year
  Sex: Female

DRUGS (12)
  1. FORTECORTIN (DEXAMETHASONE) [Concomitant]
     Active Substance: DEXAMETHASONE
  2. NEUROL (ALPRAZOLAM) [Concomitant]
     Active Substance: ALPRAZOLAM
  3. ZALDIAR (PARACETAMOL, TRAMADOL HYDROCHLORIDE) [Concomitant]
  4. PACLITAXEL. [Suspect]
     Active Substance: PACLITAXEL
     Route: 042
     Dates: start: 20180607, end: 20180607
  5. FRAXIPARINE (NADROPARIN CALCIUM) [Concomitant]
     Active Substance: NADROPARIN CALCIUM
  6. 0.9% SODIUM CHLORIDE INJECTION USP 0264-1800-31 0264-1800-32 [Suspect]
     Active Substance: SODIUM CHLORIDE
     Route: 042
     Dates: start: 20180607, end: 20180607
  7. CONTROLOC (PANTOPRAZOLE SODIUM SESQUIHYDRATE) [Concomitant]
  8. DITHIADEN (BISULEPIN HYDROCHLORIDE) [Concomitant]
  9. CIPRALEX (ESCITALOPRAM OXALATE) [Concomitant]
  10. DEXONA (DEXAMETHASONE SODIUM PHOSPHATE) [Concomitant]
  11. ALGIFEN [Concomitant]
  12. RANITAL (RANITIDINE HYDROCHLORIDE) [Concomitant]

REACTIONS (3)
  - Nausea [Recovered/Resolved]
  - Dyspepsia [Recovered/Resolved]
  - Back pain [Recovered/Resolved]

NARRATIVE: CASE EVENT DATE: 20180607
